FAERS Safety Report 13117372 (Version 1)
Quarter: 2017Q1

REPORT INFORMATION
  Report Type: Report from Study
  Country: CA (occurrence: CA)
  Receive Date: 20170116
  Receipt Date: 20170116
  Transmission Date: 20170428
  Serious: Yes (Other)
  Sender: FDA-Public Use
  Company Number: CA-JNJFOC-20170108913

PATIENT
  Age: 17 Year
  Sex: Female
  Weight: 69 kg

DRUGS (4)
  1. SOLU-CORTEF [Concomitant]
     Active Substance: HYDROCORTISONE SODIUM SUCCINATE
     Indication: PREMEDICATION
     Route: 042
  2. REMICADE [Suspect]
     Active Substance: INFLIXIMAB
     Indication: CROHN^S DISEASE
     Dosage: NUMBER OF VIALS: 5
     Route: 042
  3. REMICADE [Suspect]
     Active Substance: INFLIXIMAB
     Indication: CROHN^S DISEASE
     Dosage: 38TH DOSE
     Route: 042
     Dates: start: 20170109
  4. TYLENOL [Concomitant]
     Active Substance: ACETAMINOPHEN
     Indication: PREMEDICATION
     Route: 048

REACTIONS (6)
  - Pruritus [Recovered/Resolved]
  - Axillary mass [Unknown]
  - Blister [Recovered/Resolved]
  - Infusion related reaction [Recovered/Resolved]
  - Colitis ulcerative [Recovered/Resolved]
  - Mass [Unknown]

NARRATIVE: CASE EVENT DATE: 2016
